FAERS Safety Report 6753064-4 (Version None)
Quarter: 2010Q2

REPORT INFORMATION
  Report Type: 
  Country: None (occurrence: None)
  Receive Date: 20100602
  Receipt Date: 20100602
  Transmission Date: 20101027
  Serious: Yes (Disabling)
  Sender: FDA-Public Use
  Company Number: None

PATIENT
  Sex: Male
  Weight: 1.8 kg

DRUGS (2)
  1. GENTAMICIN [Suspect]
     Indication: KLEBSIELLA INFECTION
     Dosage: 7-8MG DAILY INTRAVENOUS PIC LINE
     Route: 042
     Dates: start: 20010709, end: 20010722
  2. GENTAMICIN [Suspect]
     Dosage: 1 DROP DAILY IN EYE
     Route: 047
     Dates: start: 20010708, end: 20010711

REACTIONS (2)
  - BALANCE DISORDER [None]
  - DEAFNESS BILATERAL [None]
